FAERS Safety Report 19121564 (Version 1)
Quarter: 2021Q2

REPORT INFORMATION
  Report Type: Spontaneous
  Country: US (occurrence: US)
  Receive Date: 20210412
  Receipt Date: 20210412
  Transmission Date: 20210717
  Serious: Yes (Other)
  Sender: FDA-Public Use
  Company Number: US-GLAXOSMITHKLINE-US2021GSK080885

PATIENT
  Sex: Male

DRUGS (2)
  1. RANITIDINE HYDROCHLORIDE. [Suspect]
     Active Substance: RANITIDINE HYDROCHLORIDE
     Indication: DYSPNOEA
     Dosage: UNK, QD
     Route: 065
     Dates: start: 198901, end: 201901
  2. RANITIDINE HYDROCHLORIDE. [Suspect]
     Active Substance: RANITIDINE HYDROCHLORIDE
     Indication: DYSPNOEA
     Dosage: UNK, QD
     Route: 065
     Dates: start: 198901, end: 201901

REACTIONS (1)
  - Squamous cell carcinoma of pharynx [Unknown]
